FAERS Safety Report 23338237 (Version 1)
Quarter: 2023Q4

REPORT INFORMATION
  Report Type: Spontaneous
  Country: JP (occurrence: JP)
  Receive Date: 20231226
  Receipt Date: 20231226
  Transmission Date: 20240110
  Serious: Yes (Other)
  Sender: FDA-Public Use
  Company Number: JP-MSD-M2023-55140

PATIENT
  Sex: Female

DRUGS (3)
  1. KEYTRUDA [Suspect]
     Active Substance: PEMBROLIZUMAB
     Indication: Neuroendocrine carcinoma of the cervix
     Dosage: 200 MILLIGRAM, Q3W
     Route: 041
     Dates: start: 20231127
  2. CARBOPLATIN [Concomitant]
     Active Substance: CARBOPLATIN
     Dosage: UNK
     Route: 065
  3. PACLITAXEL [Concomitant]
     Active Substance: PACLITAXEL
     Dosage: UNK
     Route: 065

REACTIONS (6)
  - Shock [Unknown]
  - Altered state of consciousness [Recovering/Resolving]
  - Febrile neutropenia [Unknown]
  - Immune-mediated encephalitis [Unknown]
  - Aphasia [Unknown]
  - Myoclonus [Unknown]

NARRATIVE: CASE EVENT DATE: 20231207
